FAERS Safety Report 19480011 (Version 1)
Quarter: 2021Q3

REPORT INFORMATION
  Report Type: Spontaneous
  Country: AT (occurrence: AT)
  Receive Date: 20210701
  Receipt Date: 20210701
  Transmission Date: 20211014
  Serious: Yes (Hospitalization, Other)
  Sender: FDA-Public Use
  Company Number: AT-TEVA-2021-AT-1927263

PATIENT
  Age: 30 Year
  Sex: Female

DRUGS (5)
  1. DENOSUMAB [Suspect]
     Active Substance: DENOSUMAB
     Indication: IMPAIRED HEALING
  2. DENOSUMAB [Suspect]
     Active Substance: DENOSUMAB
     Indication: MULTIPLE FRACTURES
     Dosage: ONE CYCLE OF DENOSUMAB TREATMENT RECEIVED ONE YEAR BEFORE THE PRESENTATION
     Route: 065
  3. CALCIUM CARBONATE. [Concomitant]
     Active Substance: CALCIUM CARBONATE
     Indication: MINERAL SUPPLEMENTATION
     Route: 065
  4. VITAMIN D [Concomitant]
     Active Substance: VITAMIN D NOS
     Indication: VITAMIN SUPPLEMENTATION
     Route: 048
  5. TENOFOVIR [Suspect]
     Active Substance: TENOFOVIR
     Indication: HEPATITIS B
     Dosage: SHE HAS BEEN TREATED WITH TENOFOVIR DISOPROXIL FUMARATE OVER THE COURSE OF 15 YEARS.
     Route: 065

REACTIONS (8)
  - Impaired healing [Recovering/Resolving]
  - Tibia fracture [Recovering/Resolving]
  - Fanconi syndrome acquired [Recovering/Resolving]
  - Foot fracture [Recovering/Resolving]
  - Hypophosphataemic osteomalacia [Recovering/Resolving]
  - Bone pain [Recovering/Resolving]
  - Femoral neck fracture [Recovering/Resolving]
  - Multiple fractures [Recovering/Resolving]
